FAERS Safety Report 8950344 (Version 1)
Quarter: 2012Q4

REPORT INFORMATION
  Report Type: Spontaneous
  Country: US (occurrence: None)
  Receive Date: 20121130
  Receipt Date: 20121130
  Transmission Date: 20130627
  Serious: No
  Sender: FDA-Public Use
  Company Number: None

PATIENT
  Age: 68 Year
  Sex: Female

DRUGS (19)
  1. XARELTO [Suspect]
     Indication: ATRIAL FIBRILLATION
     Dosage: 20 mg daily po
     Route: 048
     Dates: start: 20120616
  2. VICODIN [Concomitant]
  3. ADVAIR DISCUS [Concomitant]
  4. DIAZEPAM [Concomitant]
  5. DIGOXIN [Concomitant]
  6. FAMOTIDINE [Concomitant]
  7. FLUOXETINE [Concomitant]
  8. KLONOPIN [Concomitant]
  9. KLOR-CON [Concomitant]
  10. LASIX [Concomitant]
  11. LOVASTATIN [Concomitant]
  12. MULTIVITAMIN [Concomitant]
  13. NITROSTAT [Concomitant]
  14. PREMARIN [Concomitant]
  15. SPIRIVA [Concomitant]
  16. SYNTHROID [Concomitant]
  17. TOPROL XL [Concomitant]
  18. VENTOLIN HFA [Concomitant]
  19. VITAMIN D3 [Concomitant]

REACTIONS (4)
  - Dyspnoea [None]
  - Respiratory alkalosis [None]
  - Haematochezia [None]
  - Haematuria [None]
